FAERS Safety Report 7293926-5 (Version None)
Quarter: 2011Q1

REPORT INFORMATION
  Report Type: 
  Country: None (occurrence: None)
  Receive Date: 20110204
  Receipt Date: 20110121
  Transmission Date: 20110831
  Serious: Yes (Death)
  Sender: FDA-Public Use
  Company Number: 2010P1003063

PATIENT
  Age: 77 Year
  Sex: Male
  Weight: 104.3273 kg

DRUGS (11)
  1. LOPRESSOR (METOPROLOL) 25 MG [Concomitant]
  2. CRANBERRY FRUIT [Concomitant]
  3. PILL [Concomitant]
  4. NEURONTIN [Concomitant]
  5. GLIMEPIRIDE [Concomitant]
  6. ZOCOR [Concomitant]
  7. VITAMIN P12 [Concomitant]
  8. POTASSIUM CITRATE [Concomitant]
  9. FENTANYL-25 [Suspect]
     Indication: PAIN
     Dosage: ;Q72HRS;TDER
     Route: 062
     Dates: start: 20070101, end: 20101001
  10. FENTANYL-12 [Suspect]
  11. LASIX [Concomitant]

REACTIONS (7)
  - TUMOUR INVASION [None]
  - DRUG INEFFECTIVE [None]
  - PRODUCT QUALITY ISSUE [None]
  - PRODUCT MEASURED POTENCY ISSUE [None]
  - DEEP VEIN THROMBOSIS [None]
  - DIZZINESS [None]
  - RECTAL CANCER [None]
